FAERS Safety Report 22261394 (Version 3)
Quarter: 2023Q2

REPORT INFORMATION
  Report Type: Spontaneous
  Country: SK (occurrence: SK)
  Receive Date: 20230427
  Receipt Date: 20230524
  Transmission Date: 20230722
  Serious: No
  Sender: FDA-Public Use
  Company Number: SK-Zentiva-2023-ZT-006967

PATIENT
  Age: 71 Year
  Sex: Male

DRUGS (10)
  1. POSACONAZOLE [Interacting]
     Active Substance: POSACONAZOLE
     Indication: Acute myeloid leukaemia
     Dosage: UNK
  2. VENETOCLAX [Interacting]
     Active Substance: VENETOCLAX
     Indication: Acute myeloid leukaemia
     Dosage: 100 MILLIGRAM
     Route: 048
  3. BETAXOLOL [Concomitant]
     Active Substance: BETAXOLOL
     Indication: Product used for unknown indication
     Dosage: UNK
     Route: 048
  4. HYDROXYUREA [Concomitant]
     Active Substance: HYDROXYUREA
     Dosage: 500 MILLIGRAM, QD
  5. AZACITIDINE [Concomitant]
     Active Substance: AZACITIDINE
     Indication: Acute myeloid leukaemia
     Dosage: 75 MG/M2
  6. ASPIRIN [Concomitant]
     Active Substance: ASPIRIN
     Indication: Product used for unknown indication
     Dosage: UNK
     Route: 048
  7. METFORMIN [Concomitant]
     Active Substance: METFORMIN HYDROCHLORIDE
     Indication: Product used for unknown indication
     Dosage: UNK
  8. METRONIDAZOLE [Concomitant]
     Active Substance: METRONIDAZOLE
     Indication: Antibiotic prophylaxis
     Dosage: UNK
  9. METRONIDAZOLE [Concomitant]
     Active Substance: METRONIDAZOLE
     Indication: Acute myeloid leukaemia
  10. ATORVASTATIN [Concomitant]
     Active Substance: ATORVASTATIN
     Indication: Product used for unknown indication
     Dosage: UNK
     Route: 048

REACTIONS (1)
  - Drug interaction [Recovered/Resolved]
